FAERS Safety Report 8541444-6 (Version None)
Quarter: 2012Q3

REPORT INFORMATION
  Report Type: 
  Country: None (occurrence: None)
  Receive Date: 20120726
  Receipt Date: 20110915
  Transmission Date: 20120928
  Serious: No
  Sender: FDA-Public Use
  Company Number: US-ASTRAZENECA-2011SE55812

PATIENT
  Age: 57 Year
  Sex: Female

DRUGS (1)
  1. SEROQUEL XR [Suspect]
     Dosage: 50 MG ONE 2 TO 3 HOURS BEFORE BEDTIME
     Route: 048

REACTIONS (1)
  - AMNESIA [None]
